FAERS Safety Report 23239176 (Version 1)
Quarter: 2023Q4

REPORT INFORMATION
  Report Type: Spontaneous
  Country: FR (occurrence: FR)
  Receive Date: 20231129
  Receipt Date: 20231129
  Transmission Date: 20240110
  Serious: Yes (Hospitalization, Other)
  Sender: FDA-Public Use
  Company Number: None

PATIENT
  Age: 36 Year
  Sex: Male

DRUGS (4)
  1. RIFAMPIN [Interacting]
     Active Substance: RIFAMPIN
     Indication: Tuberculosis
     Dosage: 600 MG , QD
     Route: 048
     Dates: start: 20230803
  2. LEVOFLOXACIN [Suspect]
     Active Substance: LEVOFLOXACIN
     Indication: Tuberculosis
     Dosage: 1.5 DF , QD
     Route: 048
     Dates: start: 20231013
  3. FYCOMPA [Interacting]
     Active Substance: PERAMPANEL
     Indication: Epilepsy
     Dosage: 1 DF , QD
     Route: 048
  4. KEPPRA [Concomitant]
     Active Substance: LEVETIRACETAM

REACTIONS (1)
  - Tonic clonic movements [Recovered/Resolved]

NARRATIVE: CASE EVENT DATE: 20231021
